FAERS Safety Report 11757114 (Version 1)
Quarter: 2015Q4

REPORT INFORMATION
  Report Type: Report from Study
  Country: BR (occurrence: BR)
  Receive Date: 20151120
  Receipt Date: 20151120
  Transmission Date: 20160304
  Serious: Yes (Hospitalization, Disabling, Other)
  Sender: FDA-Public Use
  Company Number: BR-ABBVIE-15K-020-1473949-00

PATIENT
  Age: 19 Year
  Sex: Female
  Weight: 47 kg

DRUGS (13)
  1. PRAZOL [Concomitant]
     Indication: OESOPHAGITIS
  2. HUMIRA [Suspect]
     Active Substance: ADALIMUMAB
     Indication: CROHN^S DISEASE
     Dosage: LOADING DOSE, WEEK 0
     Route: 058
     Dates: start: 20140228, end: 20140228
  3. PRAZOL [Concomitant]
     Indication: GASTRITIS
     Dates: start: 2015
  4. HUMIRA [Suspect]
     Active Substance: ADALIMUMAB
     Route: 058
     Dates: start: 20151029
  5. HUMIRA [Suspect]
     Active Substance: ADALIMUMAB
     Dosage: LOADING DOSE, WEEK 2
     Route: 058
     Dates: start: 201403, end: 201403
  6. RIVOTRIL [Concomitant]
     Active Substance: CLONAZEPAM
     Indication: DEPRESSION
     Route: 048
  7. LASIX [Concomitant]
     Active Substance: FUROSEMIDE
     Indication: PRODUCT USED FOR UNKNOWN INDICATION
     Dates: start: 2015
  8. DONAREN [Concomitant]
     Active Substance: TRAZODONE HYDROCHLORIDE
     Indication: DEPRESSION
     Route: 048
  9. HUMIRA [Suspect]
     Active Substance: ADALIMUMAB
     Dosage: LOADING DOSE, WEEK 4
     Route: 058
     Dates: start: 201403, end: 201403
  10. MESALAZINE [Concomitant]
     Active Substance: MESALAMINE
     Indication: PRODUCT USED FOR UNKNOWN INDICATION
     Dates: start: 2015
  11. DEPOMES [Concomitant]
     Indication: MENSTRUAL DISORDER
     Route: 030
     Dates: start: 2014
  12. HUMIRA [Suspect]
     Active Substance: ADALIMUMAB
     Dosage: MAINTENANCE DOSE
     Route: 058
     Dates: end: 201509
  13. CLONAX [Concomitant]
     Indication: DEPRESSION
     Dates: start: 2015

REACTIONS (10)
  - Wound [Recovered/Resolved]
  - Genital infection fungal [Recovered/Resolved]
  - Anorectal infection bacterial [Recovered/Resolved]
  - Wound [Not Recovered/Not Resolved]
  - Immunodeficiency [Unknown]
  - Genital infection viral [Recovered/Resolved]
  - White blood cell count abnormal [Unknown]
  - Genital infection bacterial [Recovered/Resolved]
  - Candida infection [Recovered/Resolved]
  - Bacterial vaginosis [Recovered/Resolved]

NARRATIVE: CASE EVENT DATE: 201509
